FAERS Safety Report 10418605 (Version 1)
Quarter: 2014Q2

REPORT INFORMATION
  Report Type: Spontaneous
  Country: US (occurrence: None)
  Receive Date: 20140613
  Receipt Date: 20140613
  Transmission Date: 20141212
  Serious: No
  Sender: FDA-Public Use
  Company Number: 1386131

PATIENT
  Sex: Male

DRUGS (6)
  1. ZELBORAF [Suspect]
     Indication: METASTATIC MALIGNANT MELANOMA
  2. AVASTIN (BEVACIZUMAB) [Suspect]
     Indication: METASTATIC MALIGNANT MELANOMA
  3. IPIDACRINE [Concomitant]
  4. DABARAFENIB [Concomitant]
  5. ABRAXANE (PACLITAXEL ALBUMIN) [Concomitant]
  6. DTIC (DACARBAZINE) [Concomitant]

REACTIONS (3)
  - Metastases to central nervous system [None]
  - Metastases to gastrointestinal tract [None]
  - Metastases to peritoneum [None]
